FAERS Safety Report 23622772 (Version 14)
Quarter: 2024Q3

REPORT INFORMATION
  Report Type: Spontaneous
  Country: FR (occurrence: FR)
  Receive Date: 20240312
  Receipt Date: 20240913
  Transmission Date: 20241017
  Serious: Yes (Death, Life-Threatening, Hospitalization, Other)
  Sender: Waylis
  Company Number: FR-Atnahs Limited-ATNAHS20210100032

PATIENT
  Age: 34 Year
  Sex: Male
  Weight: 79 kg

DRUGS (76)
  1. VALIUM [Suspect]
     Active Substance: DIAZEPAM
     Indication: Bipolar disorder
     Route: 050
     Dates: start: 20160902, end: 20160905
  2. VALIUM [Suspect]
     Active Substance: DIAZEPAM
     Indication: Depression
     Route: 050
     Dates: start: 20160905, end: 2016
  3. VALIUM [Suspect]
     Active Substance: DIAZEPAM
     Indication: Psychiatric symptom
  4. CLOBAZAM [Suspect]
     Active Substance: CLOBAZAM
     Indication: Product used for unknown indication
     Route: 050
     Dates: start: 20160824, end: 20160908
  5. PRAZEPAM [Suspect]
     Active Substance: PRAZEPAM
     Indication: Product used for unknown indication
     Route: 050
     Dates: start: 20160902, end: 2016
  6. SKENAN [Suspect]
     Active Substance: MORPHINE SULFATE
     Indication: Back pain
     Route: 050
     Dates: start: 201607, end: 20160905
  7. SKENAN [Suspect]
     Active Substance: MORPHINE SULFATE
     Indication: Product used for unknown indication
     Dates: start: 20160902, end: 20160905
  8. SKENAN [Suspect]
     Active Substance: MORPHINE SULFATE
     Indication: Back pain
     Route: 050
     Dates: start: 20160817, end: 2016
  9. SKENAN [Suspect]
     Active Substance: MORPHINE SULFATE
     Dates: start: 201608, end: 20160908
  10. SKENAN [Suspect]
     Active Substance: MORPHINE SULFATE
  11. SKENAN [Suspect]
     Active Substance: MORPHINE SULFATE
  12. OXYCONTIN [Suspect]
     Active Substance: OXYCODONE HYDROCHLORIDE
     Indication: Product used for unknown indication
     Route: 050
  13. ARTANE [Suspect]
     Active Substance: TRIHEXYPHENIDYL HYDROCHLORIDE
     Indication: Psychiatric symptom
     Route: 050
     Dates: start: 20160810, end: 20160908
  14. ARTANE [Suspect]
     Active Substance: TRIHEXYPHENIDYL HYDROCHLORIDE
     Indication: Depression
  15. ARTANE [Suspect]
     Active Substance: TRIHEXYPHENIDYL HYDROCHLORIDE
     Indication: Product used for unknown indication
  16. QUETIAPINE FUMARATE [Suspect]
     Active Substance: QUETIAPINE FUMARATE
     Indication: Product used for unknown indication
     Route: 050
     Dates: start: 20160830, end: 2016
  17. QUETIAPINE FUMARATE [Suspect]
     Active Substance: QUETIAPINE FUMARATE
  18. THIOCOLCHICOSIDE [Suspect]
     Active Substance: THIOCOLCHICOSIDE
     Indication: Product used for unknown indication
     Route: 050
     Dates: start: 2016, end: 2016
  19. ETIFOXINE [Suspect]
     Active Substance: ETIFOXINE
     Indication: Back pain
     Route: 050
     Dates: start: 20160810, end: 20160908
  20. ETIFOXINE [Suspect]
     Active Substance: ETIFOXINE
     Indication: Product used for unknown indication
  21. CLOTIAZEPAM [Suspect]
     Active Substance: CLOTIAZEPAM
     Indication: Product used for unknown indication
     Route: 050
     Dates: start: 20160830, end: 2016
  22. PAROXETINE MESYLATE [Suspect]
     Active Substance: PAROXETINE MESYLATE
     Indication: Back pain
     Route: 050
     Dates: start: 20160817, end: 20160908
  23. PAROXETINE MESYLATE [Suspect]
     Active Substance: PAROXETINE MESYLATE
     Indication: Product used for unknown indication
  24. FENTANYL [Suspect]
     Active Substance: FENTANYL\FENTANYL CITRATE
     Indication: Back pain
     Route: 050
     Dates: start: 20160726, end: 2016
  25. FENTANYL [Suspect]
     Active Substance: FENTANYL\FENTANYL CITRATE
     Route: 050
  26. TRAMADOL [Suspect]
     Active Substance: TRAMADOL\TRAMADOL HYDROCHLORIDE
     Indication: Back pain
     Route: 050
     Dates: start: 2016, end: 2016
  27. CODEINE PHOSPHATE\IBUPROFEN [Suspect]
     Active Substance: CODEINE PHOSPHATE\IBUPROFEN
     Indication: Back pain
     Route: 050
     Dates: start: 2016, end: 2016
  28. CODEINE PHOSPHATE\IBUPROFEN [Suspect]
     Active Substance: CODEINE PHOSPHATE\IBUPROFEN
     Indication: Product used for unknown indication
     Dates: start: 20160902, end: 2016
  29. IBUPROFEN [Suspect]
     Active Substance: IBUPROFEN
     Indication: Back pain
     Route: 050
     Dates: start: 2016, end: 2016
  30. KETAMINE [Suspect]
     Active Substance: KETAMINE
     Indication: Back pain
     Route: 050
     Dates: start: 2016, end: 2016
  31. MIANSERIN HYDROCHLORIDE [Suspect]
     Active Substance: MIANSERIN HYDROCHLORIDE
     Indication: Back pain
     Route: 050
     Dates: start: 2016, end: 2016
  32. MIANSERIN HYDROCHLORIDE [Suspect]
     Active Substance: MIANSERIN HYDROCHLORIDE
     Indication: Depression
  33. MIANSERIN HYDROCHLORIDE [Suspect]
     Active Substance: MIANSERIN HYDROCHLORIDE
     Indication: Bipolar disorder
  34. MIANSERIN HYDROCHLORIDE [Suspect]
     Active Substance: MIANSERIN HYDROCHLORIDE
     Indication: Back pain
  35. PAROXETINE [Suspect]
     Active Substance: PAROXETINE
     Indication: Back pain
     Dosage: EVERY 0.33 DAY
     Route: 050
     Dates: start: 20160829, end: 20160908
  36. PAROXETINE [Suspect]
     Active Substance: PAROXETINE
     Indication: Product used for unknown indication
  37. TRAMADOL HYDROCHLORIDE [Suspect]
     Active Substance: TRAMADOL HYDROCHLORIDE
     Indication: Product used for unknown indication
     Route: 050
     Dates: start: 20160903, end: 2016
  38. TRAMADOL HYDROCHLORIDE [Suspect]
     Active Substance: TRAMADOL HYDROCHLORIDE
     Indication: Back pain
  39. CLONAZEPAM [Suspect]
     Active Substance: CLONAZEPAM
     Indication: Product used for unknown indication
  40. ACETAMINOPHEN\CODEINE PHOSPHATE [Suspect]
     Active Substance: ACETAMINOPHEN\CODEINE PHOSPHATE
     Indication: Product used for unknown indication
     Route: 050
     Dates: start: 2016, end: 2016
  41. ACETAMINOPHEN\TRAMADOL HYDROCHLORIDE [Suspect]
     Active Substance: ACETAMINOPHEN\TRAMADOL HYDROCHLORIDE
     Indication: Product used for unknown indication
     Dosage: TRAMADOL/PARACETAMOL EG LABO 37,5MG/325 MG
     Route: 050
  42. AMISULPRIDE [Suspect]
     Active Substance: AMISULPRIDE
     Indication: Schizophrenia
  43. AMISULPRIDE [Suspect]
     Active Substance: AMISULPRIDE
     Indication: Bipolar disorder
  44. AMISULPRIDE [Suspect]
     Active Substance: AMISULPRIDE
     Indication: Psychiatric symptom
  45. AMISULPRIDE [Suspect]
     Active Substance: AMISULPRIDE
     Indication: Depression
  46. COCAINE [Suspect]
     Active Substance: COCAINE
     Indication: Product used for unknown indication
  47. MEPHENESIN [Suspect]
     Active Substance: MEPHENESIN
     Indication: Product used for unknown indication
  48. MORPHINE [Suspect]
     Active Substance: MORPHINE
     Indication: Product used for unknown indication
  49. NAFRONYL [Suspect]
     Active Substance: NAFRONYL
     Indication: Product used for unknown indication
  50. NORDAZEPAM [Suspect]
     Active Substance: NORDAZEPAM
     Indication: Product used for unknown indication
  51. OXAZEPAM [Suspect]
     Active Substance: OXAZEPAM
     Indication: Depression
  52. OXAZEPAM [Suspect]
     Active Substance: OXAZEPAM
     Indication: Bipolar disorder
  53. TEMAZEPAM [Suspect]
     Active Substance: TEMAZEPAM
     Indication: Product used for unknown indication
  54. NIFUROXAZIDE [Suspect]
     Active Substance: NIFUROXAZIDE
     Indication: Product used for unknown indication
     Route: 050
     Dates: start: 2016, end: 2016
  55. CLOTIAZEPAM [Suspect]
     Active Substance: CLOTIAZEPAM
     Indication: Back pain
     Dates: start: 20160830, end: 2016
  56. CODEINE [Suspect]
     Active Substance: CODEINE
     Indication: Product used for unknown indication
  57. FENTANYL [Suspect]
     Active Substance: FENTANYL\FENTANYL CITRATE
     Indication: Product used for unknown indication
  58. FENTANYL [Suspect]
     Active Substance: FENTANYL\FENTANYL CITRATE
     Indication: Back pain
  59. QUETIAPINE FUMARATE [Suspect]
     Active Substance: QUETIAPINE FUMARATE
     Indication: Product used for unknown indication
     Dates: start: 20160830, end: 2016
  60. THIOCOLCHICOSIDE [Suspect]
     Active Substance: THIOCOLCHICOSIDE
     Indication: Product used for unknown indication
     Dates: start: 2016, end: 2016
  61. PRAZEPAM [Suspect]
     Active Substance: PRAZEPAM
     Indication: Product used for unknown indication
     Dates: start: 2016, end: 2016
  62. ALPRAZOLAM [Concomitant]
     Active Substance: ALPRAZOLAM
     Indication: Depression
     Route: 050
  63. ALPRAZOLAM [Concomitant]
     Active Substance: ALPRAZOLAM
     Indication: Psychiatric symptom
  64. ZOPICLONE [Concomitant]
     Active Substance: ZOPICLONE
     Indication: Depression
     Route: 050
  65. ZOPICLONE [Concomitant]
     Active Substance: ZOPICLONE
     Indication: Psychiatric symptom
  66. OXAZEPAM [Concomitant]
     Active Substance: OXAZEPAM
     Indication: Depression
     Route: 050
  67. OXAZEPAM [Concomitant]
     Active Substance: OXAZEPAM
     Indication: Psychiatric symptom
  68. OXAZEPAM [Concomitant]
     Active Substance: OXAZEPAM
     Indication: Bipolar disorder
  69. VALIUM [Concomitant]
     Active Substance: DIAZEPAM
     Indication: Psychiatric symptom
     Route: 050
  70. VALIUM [Concomitant]
     Active Substance: DIAZEPAM
     Indication: Depression
  71. ARTANE [Concomitant]
     Active Substance: TRIHEXYPHENIDYL HYDROCHLORIDE
     Indication: Depression
     Route: 050
  72. ARTANE [Concomitant]
     Active Substance: TRIHEXYPHENIDYL HYDROCHLORIDE
     Indication: Psychiatric symptom
  73. MIANSERIN HYDROCHLORIDE [Concomitant]
     Active Substance: MIANSERIN HYDROCHLORIDE
     Indication: Psychiatric symptom
     Route: 050
  74. MIANSERIN HYDROCHLORIDE [Concomitant]
     Active Substance: MIANSERIN HYDROCHLORIDE
     Indication: Depression
  75. AMISULPRIDE [Concomitant]
     Active Substance: AMISULPRIDE
     Indication: Depression
     Route: 050
  76. AMISULPRIDE [Concomitant]
     Active Substance: AMISULPRIDE
     Indication: Psychiatric symptom

REACTIONS (54)
  - Respiratory depression [Fatal]
  - Accidental poisoning [Fatal]
  - Overdose [Fatal]
  - Myocardial infarction [Fatal]
  - Labelled drug-drug interaction issue [Fatal]
  - Hepatic cytolysis [Fatal]
  - Encephalopathy [Fatal]
  - Hepatitis acute [Fatal]
  - Coma [Fatal]
  - Cardiomyopathy [Fatal]
  - Somnolence [Fatal]
  - Myocarditis [Fatal]
  - Hyperglycaemia [Fatal]
  - Cholecystitis infective [Fatal]
  - Acute pulmonary oedema [Fatal]
  - Confusional state [Fatal]
  - Jaundice [Fatal]
  - Drug screen false positive [Fatal]
  - Toxicity to various agents [Fatal]
  - Cardio-respiratory arrest [Fatal]
  - Hepatic enzyme increased [Fatal]
  - Coronary artery stenosis [Fatal]
  - White blood cell count increased [Fatal]
  - Stenosis [Fatal]
  - Cardiac disorder [Unknown]
  - Inflammation [Unknown]
  - Hypersomnia [Unknown]
  - Synovitis [Unknown]
  - Leukocytosis [Unknown]
  - Thirst [Unknown]
  - Panic attack [Unknown]
  - Logorrhoea [Unknown]
  - Asteatosis [Unknown]
  - Aggression [Unknown]
  - Product prescribing issue [Unknown]
  - Gallbladder injury [Fatal]
  - Monocytosis [Unknown]
  - Hepatic cytolysis [Fatal]
  - Toxicity to various agents [Fatal]
  - Cardiomyopathy [Fatal]
  - Acute pulmonary oedema [Fatal]
  - Cardiac disorder [Fatal]
  - Pancreas infection [Fatal]
  - Drug abuse [Fatal]
  - Intentional self-injury [Fatal]
  - Hypotension [Unknown]
  - Aspiration [Fatal]
  - Arrhythmia [Unknown]
  - Hepatic failure [Unknown]
  - Hepatic enzyme increased [Unknown]
  - Somnolence [Unknown]
  - Hepatobiliary disease [Unknown]
  - Ketosis [Fatal]
  - Necrosis [Fatal]

NARRATIVE: CASE EVENT DATE: 20160101
